FAERS Safety Report 12256251 (Version 1)
Quarter: 2016Q2

REPORT INFORMATION
  Report Type: Spontaneous
  Country: US (occurrence: None)
  Receive Date: 20160411
  Receipt Date: 20160411
  Transmission Date: 20160815
  Serious: Yes (Hospitalization)
  Sender: FDA-Public Use
  Company Number: None

PATIENT
  Age: 74 Year
  Sex: Male
  Weight: 82 kg

DRUGS (2)
  1. WARFARIN SODIUM 3 MG [Suspect]
     Active Substance: WARFARIN SODIUM
     Indication: CARDIOVASCULAR DISORDER
     Route: 048
  2. ASPIRIN 325 MG [Suspect]
     Active Substance: ASPIRIN
     Indication: CARDIOVASCULAR DISORDER
     Route: 048

REACTIONS (4)
  - Subarachnoid haemorrhage [None]
  - Anaemia [None]
  - Upper gastrointestinal haemorrhage [None]
  - International normalised ratio decreased [None]

NARRATIVE: CASE EVENT DATE: 20160228
